FAERS Safety Report 5531972-X (Version None)
Quarter: 2007Q4

REPORT INFORMATION
  Report Type: 
  Country: None (occurrence: None)
  Receive Date: 20071128
  Receipt Date: 20071128
  Transmission Date: 20080405
  Serious: Yes (Hospitalization)
  Sender: FDA-Public Use
  Company Number: None

PATIENT
  Age: 49 Year
  Sex: Female
  Weight: 60.3284 kg

DRUGS (5)
  1. CETUXIMAB [Suspect]
     Indication: BLADDER CANCER
     Dosage: 400MG/M2=684 MG ONCE  IV
     Route: 042
     Dates: start: 20070515, end: 20070607
  2. CETUXIMAB [Suspect]
     Indication: METASTASIS
     Dosage: 400MG/M2=684 MG ONCE  IV
     Route: 042
     Dates: start: 20070515, end: 20070607
  3. CETUXIMAB [Suspect]
     Indication: BLADDER CANCER
     Dosage: 400MG/M2=684 MG ONCE  IV
     Route: 042
     Dates: start: 20070508
  4. CETUXIMAB [Suspect]
     Indication: METASTASIS
     Dosage: 400MG/M2=684 MG ONCE  IV
     Route: 042
     Dates: start: 20070508
  5. CETUXIMAB [Suspect]
     Dosage: 250 MG/M2  WEEKLY  IV
     Route: 042
     Dates: end: 20070607

REACTIONS (2)
  - DISEASE PROGRESSION [None]
  - PYREXIA [None]
